FAERS Safety Report 9768426 (Version 2)
Quarter: 2013Q4

REPORT INFORMATION
  Report Type: Spontaneous
  Country: FR (occurrence: FR)
  Receive Date: 20131217
  Receipt Date: 20131226
  Transmission Date: 20140711
  Serious: Yes (Hospitalization)
  Sender: FDA-Public Use
  Company Number: FR-B.I. PHARMACEUTICALS,INC./RIDGEFIELD-2013-BI-41737FF

PATIENT
  Age: 89 Year
  Sex: Female

DRUGS (7)
  1. PRADAXA [Suspect]
     Indication: ATRIAL FIBRILLATION
     Dosage: 220 MG
     Route: 048
     Dates: end: 20131126
  2. ALDACTONE [Concomitant]
     Dosage: 200 MG
  3. LASILIX [Concomitant]
     Dosage: 20 MG
  4. COVERSYL [Concomitant]
     Dosage: 50 MG
  5. SECTRAL [Concomitant]
     Dosage: 200 MG
  6. DIGOXINE [Concomitant]
     Dosage: 0.25 MG
  7. ZYLORIC [Concomitant]
     Dosage: 100 MG

REACTIONS (7)
  - Rectal haemorrhage [Recovered/Resolved]
  - Renal failure acute [Recovered/Resolved]
  - Gastric ulcer [Recovered/Resolved]
  - Oesophagitis ulcerative [Recovered/Resolved]
  - Gastritis erosive [Recovered/Resolved]
  - Hypotension [Recovered/Resolved]
  - Anaemia [Not Recovered/Not Resolved]
